FAERS Safety Report 5337110-0 (Version None)
Quarter: 2007Q2

REPORT INFORMATION
  Report Type: 
  Country: None (occurrence: None)
  Receive Date: 20070529
  Receipt Date: 20070518
  Transmission Date: 20071010
  Serious: Yes (Hospitalization, Disabling)
  Sender: FDA-Public Use
  Company Number: NL-ELI_LILLY_AND_COMPANY-NL200704005185

PATIENT
  Age: 43 Year
  Sex: Male
  Weight: 101 kg

DRUGS (1)
  1. DULOXETINE HYDROCHLORIDE [Suspect]
     Dosage: UNK MG, UNKNOWN
     Route: 048
     Dates: start: 20070329, end: 20070417

REACTIONS (2)
  - CEREBRAL INFARCTION [None]
  - HYPERTENSIVE ENCEPHALOPATHY [None]
